FAERS Safety Report 6779857-5 (Version None)
Quarter: 2010Q2

REPORT INFORMATION
  Report Type: 
  Country: None (occurrence: None)
  Receive Date: 20100618
  Receipt Date: 20100611
  Transmission Date: 20101027
  Serious: Yes (Death)
  Sender: FDA-Public Use
  Company Number: FR-AMGEN-QUU411909

PATIENT
  Sex: Male

DRUGS (6)
  1. NEUPOGEN [Suspect]
     Indication: CHEMOTHERAPY
     Route: 042
     Dates: start: 20100407, end: 20100413
  2. TAXOTERE [Concomitant]
     Route: 042
     Dates: start: 20100407, end: 20100407
  3. FLUOROURACIL [Concomitant]
     Route: 042
     Dates: start: 20100407, end: 20100407
  4. CISPLATIN [Concomitant]
     Route: 042
     Dates: start: 20100407, end: 20100407
  5. SOLU-MEDROL [Concomitant]
     Route: 042
     Dates: start: 20100407, end: 20100407
  6. ZOPHREN [Concomitant]
     Route: 042
     Dates: start: 20100407, end: 20100407

REACTIONS (16)
  - ASCITES [None]
  - BACTERIAL SEPSIS [None]
  - COLITIS [None]
  - DIAPHRAGMATIC DISORDER [None]
  - GALLBLADDER NECROSIS [None]
  - GASTROINTESTINAL NECROSIS [None]
  - INTESTINAL INFARCTION [None]
  - INTESTINAL ISCHAEMIA [None]
  - LEUKOPENIA [None]
  - LOSS OF CONSCIOUSNESS [None]
  - NECROSIS [None]
  - PLATELET COUNT INCREASED [None]
  - PNEUMATOSIS [None]
  - PNEUMATOSIS INTESTINALIS [None]
  - PNEUMOPERITONEUM [None]
  - SEPTIC SHOCK [None]
